FAERS Safety Report 7798790-3 (Version None)
Quarter: 2011Q4

REPORT INFORMATION
  Report Type: 
  Country: None (occurrence: None)
  Receive Date: 20111005
  Receipt Date: 20111005
  Transmission Date: 20120403
  Serious: No
  Sender: FDA-Public Use
  Company Number: None

PATIENT
  Age: 75 Year
  Sex: Female
  Weight: 73.4827 kg

DRUGS (1)
  1. ZANTAC [Suspect]
     Dosage: 9 1 DAILY

REACTIONS (6)
  - DIARRHOEA [None]
  - HEADACHE [None]
  - NERVOUSNESS [None]
  - MALAISE [None]
  - DIZZINESS [None]
  - NAUSEA [None]
